FAERS Safety Report 5255115-5 (Version None)
Quarter: 2007Q1

REPORT INFORMATION
  Report Type: 
  Country: None (occurrence: None)
  Receive Date: 20070305
  Receipt Date: 20070221
  Transmission Date: 20070707
  Serious: Yes (Other)
  Sender: FDA-Public Use
  Company Number: PHBS2007JP03508

PATIENT
  Age: 48 Year
  Sex: Male

DRUGS (7)
  1. CYCLOSPORINE [Suspect]
     Route: 065
  2. BUSULFAN [Concomitant]
     Route: 065
  3. CYCLOPHOSPHAMIDE [Concomitant]
     Route: 065
  4. METHOTREXATE [Concomitant]
     Route: 065
  5. TACROLIMUS [Concomitant]
     Route: 065
  6. MYCOPHENOLATE MOFETIL [Concomitant]
     Route: 065
  7. GANCICLOVIR [Concomitant]
     Route: 065

REACTIONS (3)
  - ACUTE GRAFT VERSUS HOST DISEASE [None]
  - BONE MARROW FAILURE [None]
  - CHRONIC GRAFT VERSUS HOST DISEASE [None]
